FAERS Safety Report 7299859-2 (Version None)
Quarter: 2011Q1

REPORT INFORMATION
  Report Type: 
  Country: None (occurrence: None)
  Receive Date: 20110217
  Receipt Date: 20110216
  Transmission Date: 20110831
  Serious: Yes (Hospitalization)
  Sender: FDA-Public Use
  Company Number: DE-PFIZER INC-2010113762

PATIENT
  Age: 80 Year
  Sex: Female

DRUGS (11)
  1. OLMESARTAN [Concomitant]
     Dosage: 40 MG, UNK
  2. MOVICOL [Concomitant]
     Dosage: UNKNOWN
  3. MST [Concomitant]
     Dosage: 60 MG, UNK
  4. PANTOPRAZOLE [Concomitant]
     Dosage: 40 MG, UNK
  5. AMLODIPINE BESILATE [Concomitant]
     Dosage: 5 MG, UNK
  6. EUTHYROX [Concomitant]
     Dosage: 100 UG, UNK
  7. PHOSTAL [Concomitant]
     Dosage: 100/6 MICROGRAM
  8. METOCLOPRAMIDE HYDROCHLORIDE [Concomitant]
     Dosage: 60 GTT, UNK
  9. SUTENT [Suspect]
     Indication: METASTATIC RENAL CELL CARCINOMA
     Dosage: DOSE ACCORDING TO PROTOCOL
     Dates: start: 20100618, end: 20100716
  10. DEXAMETHASONE [Concomitant]
     Dosage: UNKNOWN
  11. SORAFENIB [Suspect]
     Indication: METASTATIC RENAL CELL CARCINOMA
     Dosage: DOSE ACCORDING TO PROTOCOL
     Dates: start: 20100318, end: 20100617

REACTIONS (1)
  - METASTASES TO CENTRAL NERVOUS SYSTEM [None]
